FAERS Safety Report 14850510 (Version 1)
Quarter: 2018Q2

REPORT INFORMATION
  Report Type: Spontaneous
  Country: IT (occurrence: IT)
  Receive Date: 20180505
  Receipt Date: 20180505
  Transmission Date: 20180711
  Serious: Yes (Other)
  Sender: FDA-Public Use
  Company Number: IT-AUROBINDO-AUR-APL-2018-023854

PATIENT
  Age: 48 Year
  Sex: Male
  Weight: 84 kg

DRUGS (3)
  1. OMBITASVIR W/PARITAPREVIR/RITONAVIR [Suspect]
     Active Substance: OMBITASVIR\PARITAPREVIR\RITONAVIR
     Indication: CHRONIC HEPATITIS C
     Dosage: DOSE: OBV/PTV/R: 25/150/100 MG
     Route: 048
  2. DASABUVIR [Suspect]
     Active Substance: DASABUVIR
     Indication: CHRONIC HEPATITIS C
     Dosage: 500 MILLIGRAM, ONCE A DAY
     Route: 065
  3. RIBAVIRIN. [Suspect]
     Active Substance: RIBAVIRIN
     Indication: CHRONIC HEPATITIS C
     Dosage: UNK UNK, ONCE A DAY, DOSE ACCORDING TO BODY WEIGHT AND LABEL RECOMMENDATIONS
     Route: 065

REACTIONS (1)
  - Renal impairment [Recovering/Resolving]
